FAERS Safety Report 8305933-1 (Version None)
Quarter: 2012Q2

REPORT INFORMATION
  Report Type: 
  Country: None (occurrence: None)
  Receive Date: 20120423
  Receipt Date: 20120416
  Transmission Date: 20120825
  Serious: Yes (Other)
  Sender: FDA-Public Use
  Company Number: ES-ELI_LILLY_AND_COMPANY-ES201204004829

PATIENT
  Sex: Female

DRUGS (1)
  1. FORTEO [Suspect]
     Dosage: UNK, UNKNOWN
     Route: 065
     Dates: start: 20120301

REACTIONS (5)
  - COLON NEOPLASM [None]
  - OESOPHAGITIS [None]
  - CANDIDIASIS [None]
  - WRONG TECHNIQUE IN DRUG USAGE PROCESS [None]
  - GASTRITIS [None]
